FAERS Safety Report 10418106 (Version 2)
Quarter: 2014Q4

REPORT INFORMATION
  Report Type: Report from Study
  Country: BR (occurrence: BR)
  Receive Date: 20140829
  Receipt Date: 20141125
  Transmission Date: 20150528
  Serious: Yes (Death, Hospitalization, Other)
  Sender: FDA-Public Use
  Company Number: BR-BAYER-2014-124020

PATIENT
  Age: 79 Year
  Sex: Male
  Weight: 77 kg

DRUGS (4)
  1. FLEET NOS [Concomitant]
     Active Substance: BISACODYL OR GLYCERIN OR MINERAL OIL OR SODIUM PHOSPHATE, DIBASIC\SODIUM PHOSPHATE, MONOBASIC
  2. NEXAVAR [Suspect]
     Active Substance: SORAFENIB
     Indication: HEPATIC CANCER
     Dosage: 1 DF, QD
     Route: 048
     Dates: start: 20140710, end: 20140718
  3. TRIOVAL [Concomitant]
     Indication: BRAIN HYPOXIA
     Dosage: 1 DF, HS
     Route: 048
     Dates: end: 20140718
  4. NEXAVAR [Suspect]
     Active Substance: SORAFENIB
     Indication: PANCREATIC CARCINOMA

REACTIONS (16)
  - Hypertension [Fatal]
  - Sepsis [Fatal]
  - Scrotal oedema [Not Recovered/Not Resolved]
  - Dyspnoea [None]
  - Metastases to adrenals [Fatal]
  - Haematochezia [Not Recovered/Not Resolved]
  - Jaundice [Not Recovered/Not Resolved]
  - Pruritus [Recovered/Resolved]
  - Oedema peripheral [Not Recovered/Not Resolved]
  - Metastases to spleen [None]
  - Hepatic failure [Fatal]
  - Hepatic haemorrhage [None]
  - Localised oedema [Not Recovered/Not Resolved]
  - Chronic kidney disease [Fatal]
  - Endotracheal intubation [Recovered/Resolved]
  - Splenomegaly [None]

NARRATIVE: CASE EVENT DATE: 2014
